FAERS Safety Report 10096144 (Version 2)
Quarter: 2014Q4

REPORT INFORMATION
  Report Type: Spontaneous
  Country: CA (occurrence: CA)
  Receive Date: 20140422
  Receipt Date: 20141106
  Transmission Date: 20150528
  Serious: Yes (Other)
  Sender: FDA-Public Use
  Company Number: CA-GILEAD-2014-0100057

PATIENT
  Sex: Female

DRUGS (2)
  1. RIBAVIRIN. [Concomitant]
     Active Substance: RIBAVIRIN
  2. SOVALDI [Suspect]
     Active Substance: SOFOSBUVIR
     Indication: HEPATITIS C
     Dosage: 400 MG, QD
     Route: 065

REACTIONS (6)
  - Weight decreased [Unknown]
  - Blood creatinine abnormal [Unknown]
  - Hepatitis C RNA decreased [Unknown]
  - Ascites [Unknown]
  - Renal impairment [Unknown]
  - International normalised ratio abnormal [Unknown]
